FAERS Safety Report 18719220 (Version 1)
Quarter: 2021Q1

REPORT INFORMATION
  Report Type: Spontaneous
  Country: US (occurrence: US)
  Receive Date: 20210108
  Receipt Date: 20210108
  Transmission Date: 20210419
  Serious: Yes (Other)
  Sender: FDA-Public Use
  Company Number: US-PFIZER INC-2021003480

PATIENT
  Age: 65 Year
  Sex: Female
  Weight: 68.04 kg

DRUGS (1)
  1. LYRICA [Suspect]
     Active Substance: PREGABALIN
     Indication: NEURALGIA
     Dosage: 50 MG, 2X/DAY

REACTIONS (10)
  - Allergy to animal [Not Recovered/Not Resolved]
  - Vaginal prolapse [Unknown]
  - Sleep disorder [Unknown]
  - Bladder prolapse [Unknown]
  - Hypersensitivity [Unknown]
  - Illness [Unknown]
  - Mitral valve prolapse [Recovered/Resolved]
  - Ocular discomfort [Unknown]
  - Lymphoedema [Recovering/Resolving]
  - Fatigue [Unknown]

NARRATIVE: CASE EVENT DATE: 2017
